FAERS Safety Report 20664617 (Version 1)
Quarter: 2022Q2

REPORT INFORMATION
  Report Type: Spontaneous
  Country: IN (occurrence: IN)
  Receive Date: 20220401
  Receipt Date: 20220401
  Transmission Date: 20220721
  Serious: Yes (Death)
  Sender: FDA-Public Use
  Company Number: IN-PFIZER INC-2021557496

PATIENT
  Age: 55 Year
  Sex: Male

DRUGS (2)
  1. DACOMITINIB [Suspect]
     Active Substance: DACOMITINIB
     Dosage: 45 MG, 1X/DAY
     Route: 048
     Dates: start: 20201023
  2. DACOMITINIB [Suspect]
     Active Substance: DACOMITINIB
     Dosage: 45 MG, DAILY
     Route: 048
     Dates: start: 20210512, end: 202201

REACTIONS (1)
  - Death [Fatal]

NARRATIVE: CASE EVENT DATE: 20220101
